FAERS Safety Report 24952101 (Version 1)
Quarter: 2025Q1

REPORT INFORMATION
  Report Type: Spontaneous
  Country: US (occurrence: None)
  Receive Date: 20250209
  Receipt Date: 20250209
  Transmission Date: 20250409
  Serious: Yes (Disabling, Other)
  Sender: FDA-CTU
  Company Number: None

PATIENT
  Age: 40 Year
  Sex: Male
  Weight: 78.75 kg

DRUGS (2)
  1. LEVOFLOXACIN [Suspect]
     Active Substance: LEVOFLOXACIN
     Indication: Drug therapy
     Route: 048
     Dates: start: 20250118, end: 20250119
  2. LEVOFLOXACIN [Suspect]
     Active Substance: LEVOFLOXACIN
     Indication: Product used for unknown indication

REACTIONS (10)
  - Headache [None]
  - Refusal of treatment by patient [None]
  - Peripheral coldness [None]
  - Paraesthesia [None]
  - Ocular hyperaemia [None]
  - Weight decreased [None]
  - Abnormal faeces [None]
  - Varicocele [None]
  - Product communication issue [None]
  - Spermatic cord pain [None]

NARRATIVE: CASE EVENT DATE: 20250118
